FAERS Safety Report 21013542 (Version 1)
Quarter: 2022Q2

REPORT INFORMATION
  Report Type: Spontaneous
  Country: US (occurrence: US)
  Receive Date: 20220627
  Receipt Date: 20220627
  Transmission Date: 20220720
  Serious: Yes (Hospitalization)
  Sender: FDA-Public Use
  Company Number: US-SA-SAC20220621001649

PATIENT
  Sex: Male

DRUGS (2)
  1. ELOCTATE [Suspect]
     Active Substance: (1-743)-(1638-2332)-BLOOD-COAGULATION FACTOR VIII (SYNTHETIC HUMAN) FUSION PROTEIN WITH IMMUNOGLOBUL
     Indication: Factor VIII deficiency
     Dosage: 1000 UNITS (900-1100) SLOW, BIWAND AS NEEDED FOR UP TO ONE DOSE FOR BLEEDING EVENTS
     Route: 042
     Dates: start: 20191010
  2. ELOCTATE [Suspect]
     Active Substance: (1-743)-(1638-2332)-BLOOD-COAGULATION FACTOR VIII (SYNTHETIC HUMAN) FUSION PROTEIN WITH IMMUNOGLOBUL
     Indication: Factor VIII deficiency
     Dosage: 1000 UNITS (900-1100) SLOW, BIWAND AS NEEDED FOR UP TO ONE DOSE FOR BLEEDING EVENTS
     Route: 042
     Dates: start: 20191010

REACTIONS (1)
  - Device issue [Unknown]
